FAERS Safety Report 12337089 (Version 1)
Quarter: 2016Q2

REPORT INFORMATION
  Report Type: Spontaneous
  Country: US (occurrence: US)
  Receive Date: 20160505
  Receipt Date: 20160505
  Transmission Date: 20160815
  Serious: No
  Sender: FDA-Public Use
  Company Number: US-BAYER-2016-086827

PATIENT
  Age: 24 Year
  Sex: Male

DRUGS (1)
  1. GADAVIST [Suspect]
     Active Substance: GADOBUTROL
     Indication: NUCLEAR MAGNETIC RESONANCE IMAGING
     Dosage: UNK, ONCE
     Route: 042

REACTIONS (3)
  - Productive cough [None]
  - Nasal congestion [None]
  - Cough [None]

NARRATIVE: CASE EVENT DATE: 20160408
